FAERS Safety Report 7198224-6 (Version None)
Quarter: 2010Q4

REPORT INFORMATION
  Report Type: 
  Country: None (occurrence: None)
  Receive Date: 20101227
  Receipt Date: 20101216
  Transmission Date: 20110411
  Serious: Yes (Hospitalization)
  Sender: FDA-Public Use
  Company Number: BR-JNJFOC-20101207656

PATIENT
  Age: 50 Year
  Sex: Female

DRUGS (5)
  1. HALOPERIDOL [Suspect]
     Indication: AGITATION
     Route: 065
  2. HALOPERIDOL [Suspect]
     Route: 065
  3. FLUOXETINE [Suspect]
     Indication: PRODUCT USED FOR UNKNOWN INDICATION
     Route: 065
  4. BIPERIDEN HYDROCHLORIDE TAB [Suspect]
     Indication: AGITATION
     Route: 065
  5. CLONAZEPAM [Suspect]
     Indication: AGITATION
     Route: 065

REACTIONS (4)
  - AGITATION [None]
  - BIPOLAR I DISORDER [None]
  - CATATONIA [None]
  - DELIRIUM [None]
